FAERS Safety Report 6593971-9 (Version None)
Quarter: 2010Q1

REPORT INFORMATION
  Report Type: 
  Country: None (occurrence: None)
  Receive Date: 20100222
  Receipt Date: 20100215
  Transmission Date: 20100710
  Serious: Yes (Death, Life-Threatening, Hospitalization)
  Sender: FDA-Public Use
  Company Number: TW-TEVA-224804ISR

PATIENT
  Age: 13 Month
  Sex: Male

DRUGS (7)
  1. METHOTREXATE [Suspect]
     Route: 037
  2. VINCRISTINE [Suspect]
  3. PREDNISOLONE [Suspect]
     Route: 048
  4. IDARUBICIN HCL [Suspect]
  5. ASPARAGINASE [Suspect]
     Dosage: 5000 U/M2/DAY
  6. CYTARABINE [Suspect]
     Route: 037
  7. HYDROCORTISONE [Suspect]
     Route: 037

REACTIONS (4)
  - CAECITIS [None]
  - HYPERAMMONAEMIC ENCEPHALOPATHY [None]
  - METABOLIC ALKALOSIS [None]
  - RESPIRATORY ALKALOSIS [None]
